FAERS Safety Report 4646238-X (Version None)
Quarter: 2005Q2

REPORT INFORMATION
  Report Type: 
  Country: None (occurrence: None)
  Receive Date: 20050425
  Receipt Date: 20050412
  Transmission Date: 20051028
  Serious: Yes (Hospitalization)
  Sender: FDA-Public Use
  Company Number: 2005_000023

PATIENT
  Age: 63 Year
  Sex: Female
  Weight: 90.2658 kg

DRUGS (2)
  1. DEPOCYT [Suspect]
     Indication: CENTRAL NERVOUS SYSTEM LYMPHOMA
     Dosage: 50 MG; X1; INTRATHECAL
     Route: 037
     Dates: start: 20050407, end: 20050407
  2. DEPOCYT [Suspect]
     Indication: MENINGITIS
     Dosage: 50 MG; X1; INTRATHECAL
     Route: 037
     Dates: start: 20050407, end: 20050407

REACTIONS (9)
  - ARACHNOIDITIS [None]
  - CONFUSIONAL STATE [None]
  - CSF NEUTROPHIL COUNT INCREASED [None]
  - DELIRIUM [None]
  - DEPRESSED LEVEL OF CONSCIOUSNESS [None]
  - HEADACHE [None]
  - MENTAL STATUS CHANGES [None]
  - MUSCULOSKELETAL STIFFNESS [None]
  - PYREXIA [None]
